FAERS Safety Report 16693231 (Version 2)
Quarter: 2019Q3

REPORT INFORMATION
  Report Type: Spontaneous
  Country: US (occurrence: US)
  Receive Date: 20190812
  Receipt Date: 20190910
  Transmission Date: 20191004
  Serious: Yes (Other)
  Sender: FDA-Public Use
  Company Number: US-AKORN PHARMACEUTICALS-2019AKN01675

PATIENT
  Sex: Male

DRUGS (2)
  1. MYORISAN [Suspect]
     Active Substance: ISOTRETINOIN
     Indication: ACNE
     Dosage: 30 MG, 2X/DAY
     Route: 048
     Dates: start: 20190417, end: 20190731
  2. FISH OIL [Concomitant]
     Active Substance: FISH OIL

REACTIONS (7)
  - Feeling abnormal [Recovering/Resolving]
  - Mood altered [Recovering/Resolving]
  - Mental disorder [Recovering/Resolving]
  - Conversion disorder [Recovering/Resolving]
  - Apathy [Recovering/Resolving]
  - Depression [Recovering/Resolving]
  - Anxiety [Recovering/Resolving]

NARRATIVE: CASE EVENT DATE: 2019
